FAERS Safety Report 19983721 (Version 1)
Quarter: 2021Q4

REPORT INFORMATION
  Report Type: Spontaneous
  Country: US (occurrence: US)
  Receive Date: 20211021
  Receipt Date: 20211021
  Transmission Date: 20220303
  Serious: No
  Sender: FDA-Public Use
  Company Number: None

PATIENT
  Age: 4 Week
  Sex: Female

DRUGS (1)
  1. HUMIRA [Suspect]
     Active Substance: ADALIMUMAB
     Indication: Osteoarthritis
     Dosage: OTHER FREQUENCY:EVERY 10 DAYS;
     Route: 058
     Dates: start: 200312

REACTIONS (1)
  - Motion sickness [None]

NARRATIVE: CASE EVENT DATE: 20031201
